FAERS Safety Report 7238866-2 (Version None)
Quarter: 2011Q1

REPORT INFORMATION
  Report Type: 
  Country: None (occurrence: None)
  Receive Date: 20110121
  Receipt Date: 20110117
  Transmission Date: 20110831
  Serious: Yes (Other)
  Sender: FDA-Public Use
  Company Number: PHHY2011JP03648

PATIENT
  Sex: Male

DRUGS (3)
  1. MIGLITOL [Concomitant]
     Dosage: 150 MG
     Route: 048
  2. OLMETEC [Concomitant]
     Dosage: 10 MG
     Route: 048
  3. LAMISIL [Suspect]
     Dosage: UNK
     Route: 048
     Dates: start: 20101029

REACTIONS (2)
  - ACCIDENT [None]
  - SOMNOLENCE [None]
